FAERS Safety Report 8224462-7 (Version None)
Quarter: 2012Q1

REPORT INFORMATION
  Report Type: 
  Country: None (occurrence: None)
  Receive Date: 20120319
  Receipt Date: 20120309
  Transmission Date: 20120608
  Serious: Yes (Other)
  Sender: FDA-Public Use
  Company Number: CL-395-2012

PATIENT
  Age: 70 Year
  Sex: Female

DRUGS (5)
  1. HYDROCODONE BITARTRATE + ACETAMINOPHEN [Concomitant]
  2. FLAGYL [Suspect]
     Indication: DIVERTICULITIS
     Dates: end: 20110501
  3. LEVOFLOXACIN [Suspect]
     Indication: DIVERTICULITIS
     Dates: end: 20110501
  4. FLECTOR PATCH (DICLOFENAC EPOLAMINE) [Suspect]
     Indication: PAIN IN EXTREMITY
     Dosage: PATCH, SINGLE; TOPICAL
     Route: 061
     Dates: start: 20110502, end: 20110502
  5. CIPROFLOXACIN [Suspect]
     Indication: DIVERTICULITIS
     Dates: end: 20110501

REACTIONS (5)
  - VULVOVAGINAL DISCOMFORT [None]
  - VULVAL DISORDER [None]
  - VULVOVAGINAL BURNING SENSATION [None]
  - ERYTHEMA [None]
  - VULVOVAGINAL PRURITUS [None]
